FAERS Safety Report 12905441 (Version 2)
Quarter: 2016Q4

REPORT INFORMATION
  Report Type: Report from Study
  Country: JP (occurrence: JP)
  Receive Date: 20161103
  Receipt Date: 20161109
  Transmission Date: 20170207
  Serious: Yes (Death, Other)
  Sender: FDA-Public Use
  Company Number: JP-AMGEN-JPNCT2016153915

PATIENT
  Age: 72 Year
  Sex: Male
  Weight: 57 kg

DRUGS (24)
  1. MAXIPIME [Suspect]
     Active Substance: CEFEPIME HYDROCHLORIDE
     Indication: PYREXIA
     Dosage: UNK
     Route: 065
     Dates: start: 20150821
  2. ADONA [Concomitant]
     Active Substance: CARBAZOCHROME SODIUM SULFONATE
     Indication: IMMUNE THROMBOCYTOPENIC PURPURA
     Dosage: 25 TO 200 MG, UNK
     Route: 048
     Dates: start: 20150710, end: 20150926
  3. SAHNE [Concomitant]
     Indication: URTICARIA
     Dosage: UNK
     Route: 061
  4. CANCIDAS [Suspect]
     Active Substance: CASPOFUNGIN ACETATE
     Indication: PYREXIA
     Dosage: UNK
     Route: 041
  5. OMEPRAZOLE. [Concomitant]
     Active Substance: OMEPRAZOLE
     Indication: IMMUNE THROMBOCYTOPENIC PURPURA
     Dosage: 40 MG, UNK
     Route: 048
     Dates: start: 20150714, end: 20150720
  6. OMEPRAZOLE. [Concomitant]
     Active Substance: OMEPRAZOLE
     Indication: UPPER GASTROINTESTINAL HAEMORRHAGE
  7. SAWACILLIN [Concomitant]
     Active Substance: AMOXICILLIN
     Indication: IMMUNE THROMBOCYTOPENIC PURPURA
     Dosage: 1500 MG, UNK
     Route: 048
     Dates: start: 20150714, end: 20150720
  8. SANDIMMUN [Concomitant]
     Active Substance: CYCLOSPORINE
     Indication: IMMUNE THROMBOCYTOPENIC PURPURA
     Dosage: 150 MG, UNK
     Route: 041
     Dates: start: 20150925, end: 20150926
  9. ROMIPLOSTIM [Suspect]
     Active Substance: ROMIPLOSTIM
     Indication: IMMUNE THROMBOCYTOPENIC PURPURA
     Dosage: 1 MUG/KG, UNK
     Route: 058
     Dates: start: 20150722, end: 20150722
  10. ROMIPLOSTIM [Suspect]
     Active Substance: ROMIPLOSTIM
     Dosage: 6 MUG/KG, UNK
     Route: 058
     Dates: start: 20150826, end: 20150826
  11. ZOSYN [Suspect]
     Active Substance: PIPERACILLIN SODIUM\TAZOBACTAM SODIUM
     Indication: PYREXIA
     Dosage: UNK
     Route: 065
  12. MYSER [Concomitant]
     Active Substance: DIFLUPREDNATE
     Indication: URTICARIA
     Dosage: UNK
     Route: 061
  13. REVOLADE [Concomitant]
     Active Substance: ELTROMBOPAG
     Indication: IMMUNE THROMBOCYTOPENIC PURPURA
     Dosage: 12.5 TO 50 MG, UNK
     Route: 048
     Dates: start: 20150901, end: 20150927
  14. ROMIPLOSTIM [Suspect]
     Active Substance: ROMIPLOSTIM
     Dosage: 5 MUG/KG, UNK
     Route: 058
     Dates: start: 20150819, end: 20150819
  15. VANCOMYCIN [Suspect]
     Active Substance: VANCOMYCIN
     Indication: PYREXIA
     Dosage: UNK
     Route: 065
  16. VENOGLOBULIN IH [Concomitant]
     Active Substance: HUMAN IMMUNOGLOBULIN G
     Indication: IMMUNE THROMBOCYTOPENIC PURPURA
     Dosage: 20 G, UNK
     Route: 065
     Dates: start: 20150828, end: 20150918
  17. ROMIPLOSTIM [Suspect]
     Active Substance: ROMIPLOSTIM
     Dosage: 4 MUG/KG, UNK
     Route: 058
     Dates: start: 20150812, end: 20150812
  18. PREDONINE [Concomitant]
     Active Substance: PREDNISOLONE\PREDNISOLONE ACETATE\PREDNISOLONE SODIUM SUCCINATE
     Indication: IMMUNE THROMBOCYTOPENIC PURPURA
     Dosage: 10 TO 60 MG, UNK
     Route: 048
  19. ROMIPLOSTIM [Suspect]
     Active Substance: ROMIPLOSTIM
     Dosage: 3 MUG/KG, UNK
     Route: 058
     Dates: start: 20150805, end: 20150805
  20. CLARITHROMYCIN. [Concomitant]
     Active Substance: CLARITHROMYCIN
     Indication: IMMUNE THROMBOCYTOPENIC PURPURA
     Dosage: 800 MG, UNK
     Route: 048
     Dates: start: 20150714, end: 20150720
  21. PROPETO [Concomitant]
     Indication: URTICARIA
     Dosage: UNK
     Route: 061
  22. ROMIPLOSTIM [Suspect]
     Active Substance: ROMIPLOSTIM
     Dosage: 2 MUG/KG, UNK
     Route: 058
     Dates: start: 20150729, end: 20150729
  23. PREDNISOLONE. [Concomitant]
     Active Substance: PREDNISOLONE
     Indication: IMMUNE THROMBOCYTOPENIC PURPURA
     Dosage: 2.5 TO 17.5 MG, UNK
     Route: 048
  24. RINDERON VG [Concomitant]
     Active Substance: BETAMETHASONE VALERATE\GENTAMICIN SULFATE
     Indication: URTICARIA
     Dosage: UNK
     Route: 061

REACTIONS (10)
  - Dry eye [Unknown]
  - Gastrointestinal haemorrhage [Fatal]
  - Urticaria [Unknown]
  - Upper gastrointestinal haemorrhage [Not Recovered/Not Resolved]
  - Delirium [Unknown]
  - Infection [Recovering/Resolving]
  - Pleural effusion [Recovering/Resolving]
  - Hepatic function abnormal [Recovered/Resolved]
  - Pyrexia [Recovering/Resolving]
  - Shock haemorrhagic [Recovering/Resolving]

NARRATIVE: CASE EVENT DATE: 20150808
